FAERS Safety Report 19076985 (Version 1)
Quarter: 2021Q1

REPORT INFORMATION
  Report Type: Spontaneous
  Country: US (occurrence: US)
  Receive Date: 20210331
  Receipt Date: 20210331
  Transmission Date: 20210420
  Serious: No
  Sender: FDA-Public Use
  Company Number: US-JNJFOC-20210356302

PATIENT
  Sex: Male

DRUGS (7)
  1. PEPCID [Suspect]
     Active Substance: FAMOTIDINE
     Indication: RASH PRURITIC
     Dosage: WITH A RECOMMENDATION TO TAKE ONE TO TWO TIMES A DAY
     Route: 065
     Dates: start: 20210310
  2. BENADRYL [Concomitant]
     Active Substance: DIPHENHYDRAMINE HYDROCHLORIDE
     Indication: VACCINATION COMPLICATION
  3. COVID?19 VACCINE [Concomitant]
     Indication: IMMUNISATION
     Dosage: FIRST DOSE INJECTED IN HIS RIGHT ARM
     Dates: start: 20210306
  4. PEPCID [Suspect]
     Active Substance: FAMOTIDINE
     Indication: VACCINATION COMPLICATION
  5. DECADRON [Concomitant]
     Active Substance: DEXAMETHASONE
     Indication: VACCINATION COMPLICATION
  6. DECADRON [Concomitant]
     Active Substance: DEXAMETHASONE
     Indication: RASH PRURITIC
     Route: 048
  7. BENADRYL [Concomitant]
     Active Substance: DIPHENHYDRAMINE HYDROCHLORIDE
     Indication: RASH PRURITIC
     Route: 065
     Dates: start: 20210310

REACTIONS (2)
  - Off label use [Unknown]
  - Product use in unapproved indication [Unknown]

NARRATIVE: CASE EVENT DATE: 20210310
